FAERS Safety Report 6609576-7 (Version None)
Quarter: 2010Q1

REPORT INFORMATION
  Report Type: 
  Country: None (occurrence: None)
  Receive Date: 20100302
  Receipt Date: 20100222
  Transmission Date: 20100710
  Serious: Yes (Death)
  Sender: FDA-Public Use
  Company Number: US-SANOFI-AVENTIS-2010SA010349

PATIENT
  Sex: Male

DRUGS (5)
  1. LOVENOX [Suspect]
     Route: 065
  2. LOVENOX [Suspect]
     Route: 065
  3. LOVENOX [Suspect]
     Route: 065
  4. LOVENOX [Suspect]
     Route: 065
  5. LOVENOX [Suspect]
     Route: 065

REACTIONS (1)
  - DEATH [None]
